FAERS Safety Report 7323782-8 (Version None)
Quarter: 2011Q1

REPORT INFORMATION
  Report Type: 
  Country: None (occurrence: None)
  Receive Date: 20110301
  Receipt Date: 20110223
  Transmission Date: 20110831
  Serious: Yes (Death)
  Sender: FDA-Public Use
  Company Number: CH-BRISTOL-MYERS SQUIBB COMPANY-15565690

PATIENT
  Age: 1 Day
  Sex: Male

DRUGS (5)
  1. TEMESTA [Suspect]
     Route: 064
     Dates: end: 20100201
  2. STILNOX [Suspect]
     Indication: INSOMNIA
     Route: 064
     Dates: start: 20080101
  3. CIPRALEX [Suspect]
     Indication: SCHIZOPHRENIA
     Route: 064
     Dates: start: 20080101
  4. ZYPREXA [Suspect]
     Indication: SCHIZOPHRENIA
     Route: 064
  5. ABILIFY [Suspect]
     Indication: SCHIZOPHRENIA
     Route: 064
     Dates: start: 20080101, end: 20100101

REACTIONS (1)
  - DEATH NEONATAL [None]
